FAERS Safety Report 24229392 (Version 1)
Quarter: 2024Q3

REPORT INFORMATION
  Report Type: Spontaneous
  Country: US (occurrence: None)
  Receive Date: 20240820
  Receipt Date: 20240820
  Transmission Date: 20241017
  Serious: Yes (Life-Threatening, Hospitalization, Other)
  Sender: Public
  Company Number: None

PATIENT
  Age: 58 Year
  Sex: Female
  Weight: 20.46 kg

DRUGS (5)
  1. CLONAZEPAM [Suspect]
     Active Substance: CLONAZEPAM
     Indication: Epilepsy
     Dosage: OTHER FREQUENCY : 2 TABS HS;?
     Route: 048
  2. BRIVIACT [Concomitant]
  3. CLONAZEPAM [Concomitant]
     Active Substance: CLONAZEPAM
  4. VIMPAT [Concomitant]
     Active Substance: LACOSAMIDE
  5. MIDAZOLAM NASAL SPRAY PRN [Concomitant]

REACTIONS (3)
  - Generalised tonic-clonic seizure [None]
  - Cerebral haemorrhage [None]
  - Treatment failure [None]

NARRATIVE: CASE EVENT DATE: 20240814
